FAERS Safety Report 8784913 (Version 2)
Quarter: 2012Q4

REPORT INFORMATION
  Report Type: 
  Country: US (occurrence: US)
  Receive Date: 20120914
  Receipt Date: 20120914
  Transmission Date: 20130627
  Serious: Yes (Hospitalization, Other)
  Sender: FDA-Public Use
  Company Number: US-JNJFOC-20120803294

PATIENT
  Age: 69 Year
  Sex: Male
  Weight: 63.5 kg

DRUGS (9)
  1. IMODIUM A-D LIQUID [Suspect]
     Indication: DIARRHOEA
     Dosage: in feeding tube
     Route: 065
     Dates: end: 20120805
  2. IMODIUM A-D LIQUID [Suspect]
     Indication: DIARRHOEA
     Route: 065
  3. IMODIUM A-D LIQUID [Suspect]
     Indication: DIARRHOEA
     Dosage: 5ml, then increased to 10ml
     Route: 065
     Dates: start: 20120731
  4. OPIUM [Concomitant]
     Indication: DIARRHOEA
     Dosage: 3-4 times a day for 9 days
     Route: 065
     Dates: start: 20120721
  5. METOCLOPRAMIDE [Concomitant]
     Indication: VOMITING
     Dosage: used for 15 days
     Route: 065
  6. METOCLOPRAMIDE [Concomitant]
     Indication: VOMITING
     Dosage: used for 15 days
     Route: 065
     Dates: start: 20120721
  7. METOCLOPRAMIDE [Concomitant]
     Indication: NAUSEA
     Dosage: used for 15 days
     Route: 065
  8. METOCLOPRAMIDE [Concomitant]
     Indication: NAUSEA
     Dosage: used for 15 days
     Route: 065
     Dates: start: 20120721
  9. METOPROLOL TARTRATE [Concomitant]
     Indication: HYPERTENSION
     Dosage: for 15 days
     Route: 065
     Dates: start: 20120721

REACTIONS (4)
  - Haematemesis [Recovered/Resolved]
  - Faeces discoloured [Recovered/Resolved]
  - Overdose [Recovered/Resolved]
  - Drug ineffective [None]
